FAERS Safety Report 17907416 (Version 2)
Quarter: 2020Q3

REPORT INFORMATION
  Report Type: Spontaneous
  Country: US (occurrence: US)
  Receive Date: 20200617
  Receipt Date: 20200807
  Transmission Date: 20201103
  Serious: Yes (Other)
  Sender: FDA-Public Use
  Company Number: US-SA-2020SA154813

PATIENT

DRUGS (2)
  1. DUPIXENT [Suspect]
     Active Substance: DUPILUMAB
     Indication: DERMATITIS ATOPIC
     Dosage: UNK UNK, 1X
     Route: 058
  2. DUPIXENT [Suspect]
     Active Substance: DUPILUMAB
     Dosage: 300 MG, QOW
     Route: 058

REACTIONS (7)
  - Incorrect dose administered [Unknown]
  - Drug ineffective [Unknown]
  - Eye pruritus [Unknown]
  - Ophthalmic herpes zoster [Unknown]
  - Ocular hyperaemia [Unknown]
  - Eye swelling [Unknown]
  - Blister [Unknown]
